FAERS Safety Report 4576571-1 (Version None)
Quarter: 2005Q1

REPORT INFORMATION
  Report Type: 
  Country: None (occurrence: None)
  Receive Date: 20050119
  Receipt Date: 20040528
  Transmission Date: 20050727
  Serious: Yes (Other)
  Sender: FDA-Public Use
  Company Number: A03200401739

PATIENT
  Age: 52 Year
  Sex: Male
  Weight: 99.7913 kg

DRUGS (10)
  1. PLAVIX [Suspect]
     Indication: CORONARY ARTERY OCCLUSION
     Dosage: 75 MG QD - ORAL
     Route: 048
     Dates: start: 20040401
  2. PLAVIX [Suspect]
     Indication: STENT PLACEMENT
     Dosage: 75 MG QD - ORAL
     Route: 048
     Dates: start: 20040401
  3. ROSIGLITAZONE MALEATE [Concomitant]
  4. METFORMIN HCL [Concomitant]
  5. ATORVASTATIN [Concomitant]
  6. ACETYLSALICYLIC ACID [Concomitant]
  7. DIGOXIN [Concomitant]
  8. INSULIN HUMAN [Concomitant]
  9. ATENOLOL [Concomitant]
  10. QUINAPRIL HCL [Concomitant]

REACTIONS (2)
  - AGEUSIA [None]
  - TRANSIENT ISCHAEMIC ATTACK [None]
